FAERS Safety Report 5205640-8 (Version None)
Quarter: 2007Q1

REPORT INFORMATION
  Report Type: 
  Country: None (occurrence: None)
  Receive Date: 20070105
  Receipt Date: 20070105
  Transmission Date: 20070707
  Serious: Yes (Life-Threatening)
  Sender: FDA-Public Use
  Company Number: None

PATIENT
  Age: 64 Year
  Sex: Female
  Weight: 59 kg

DRUGS (18)
  1. COLISTIN [Suspect]
     Indication: ACINETOBACTER INFECTION
     Dosage: 115 MG IV Q 12HR
     Route: 042
     Dates: start: 20060313, end: 20060329
  2. COLISTIN [Suspect]
     Indication: PNEUMONIA
     Dosage: 115 MG IV Q 12HR
     Route: 042
     Dates: start: 20060313, end: 20060329
  3. APAP TAB [Concomitant]
  4. AMIODARONE HCL [Concomitant]
  5. ASPIRIN [Concomitant]
  6. DOBUTAMINE HCL [Concomitant]
  7. INSULIN [Concomitant]
  8. CEFAZOLIN [Concomitant]
  9. CHLOROTHIAZIDE [Concomitant]
  10. ENALAPRILATE [Concomitant]
  11. FLUCONAZOLE [Concomitant]
  12. FUROSEMIDE [Concomitant]
  13. HALOPERIDOL [Concomitant]
  14. HYDRALAZINE HCL [Concomitant]
  15. LORAZEPAM [Concomitant]
  16. MAALOX FAST BLOCKER [Concomitant]
  17. MFS04 [Concomitant]
  18. MORPHINE [Concomitant]

REACTIONS (4)
  - LETHARGY [None]
  - LOSS OF CONSCIOUSNESS [None]
  - MOVEMENT DISORDER [None]
  - RESPIRATORY FAILURE [None]
